FAERS Safety Report 21472538 (Version 2)
Quarter: 2022Q4

REPORT INFORMATION
  Report Type: Spontaneous
  Country: BR (occurrence: BR)
  Receive Date: 20221018
  Receipt Date: 20221115
  Transmission Date: 20230113
  Serious: No
  Sender: FDA-Public Use
  Company Number: BR-JNJFOC-20221003277

PATIENT

DRUGS (2)
  1. RISPERDAL [Suspect]
     Active Substance: RISPERIDONE
     Indication: Product used for unknown indication
     Dosage: STRENGTH: UNKNOWN
     Route: 048
  2. RISPERDAL [Suspect]
     Active Substance: RISPERIDONE

REACTIONS (1)
  - Physical product label issue [Unknown]
